FAERS Safety Report 23226402 (Version 2)
Quarter: 2023Q4

REPORT INFORMATION
  Report Type: Spontaneous
  Country: JP (occurrence: JP)
  Receive Date: 20231124
  Receipt Date: 20231225
  Transmission Date: 20240109
  Serious: Yes (Other)
  Sender: FDA-Public Use
  Company Number: JP-HEXAL-SDZ2023JP051021AA

PATIENT
  Age: 24 Month
  Weight: 8 kg

DRUGS (5)
  1. OCTREOTIDE ACETATE [Suspect]
     Active Substance: OCTREOTIDE ACETATE
     Indication: Pleural effusion
     Dosage: 0.5 UG/KG/H (INFUSION)
     Route: 042
  2. OCTREOTIDE ACETATE [Suspect]
     Active Substance: OCTREOTIDE ACETATE
     Dosage: 0.2 UG/KG/H (INFUSION)
     Route: 042
  3. OCTREOTIDE ACETATE [Suspect]
     Active Substance: OCTREOTIDE ACETATE
     Dosage: 0.8 UG/KG/H (INFUSION)
     Route: 042
  4. OCTREOTIDE ACETATE [Suspect]
     Active Substance: OCTREOTIDE ACETATE
     Dosage: 0.4 UG/KG/H (INFUSION)
     Route: 042
  5. OCTREOTIDE ACETATE [Suspect]
     Active Substance: OCTREOTIDE ACETATE
     Dosage: 0.8 UG/KG/H (INFUSION)
     Route: 042

REACTIONS (2)
  - Gastrointestinal haemorrhage [Recovered/Resolved]
  - Off label use [Unknown]
